FAERS Safety Report 5779152-7 (Version None)
Quarter: 2008Q2

REPORT INFORMATION
  Report Type: 
  Country: None (occurrence: None)
  Receive Date: 20080616
  Receipt Date: 20080423
  Transmission Date: 20081010
  Serious: Yes (Other)
  Sender: FDA-Public Use
  Company Number: 2008010443

PATIENT
  Age: 26 Year
  Sex: Male

DRUGS (1)
  1. ZYRTEC [Suspect]
     Dosage: SEVEN TABLETS ONCE, ORAL
     Route: 048
     Dates: start: 20080423, end: 20080423

REACTIONS (1)
  - ACCIDENTAL OVERDOSE [None]
